FAERS Safety Report 22258257 (Version 2)
Quarter: 2023Q2

REPORT INFORMATION
  Report Type: Spontaneous
  Country: GB (occurrence: GB)
  Receive Date: 20230427
  Receipt Date: 20230630
  Transmission Date: 20230721
  Serious: Yes (Other)
  Sender: FDA-Public Use
  Company Number: GB-JAZZ PHARMACEUTICALS-2023-GB-009292

PATIENT
  Age: 9 Year
  Sex: Female

DRUGS (8)
  1. CANNABIDIOL [Suspect]
     Active Substance: CANNABIDIOL
     Indication: Petit mal epilepsy
  2. ONFI [Concomitant]
     Active Substance: CLOBAZAM
     Indication: Product used for unknown indication
  3. ZONEGRAN [Concomitant]
     Active Substance: ZONISAMIDE
     Indication: Product used for unknown indication
  4. DEPAKOTE [Concomitant]
     Active Substance: DIVALPROEX SODIUM
     Indication: Product used for unknown indication
  5. ALCOHOL [Concomitant]
     Active Substance: ALCOHOL
     Indication: Product used for unknown indication
  6. KEPPRA [Concomitant]
     Active Substance: LEVETIRACETAM
     Indication: Product used for unknown indication
  7. KLONOPIN [Concomitant]
     Active Substance: CLONAZEPAM
     Indication: Product used for unknown indication
  8. CLOBAZAM [Concomitant]
     Active Substance: CLOBAZAM
     Indication: Product used for unknown indication

REACTIONS (1)
  - Petit mal epilepsy [Unknown]
